FAERS Safety Report 7637205-2 (Version None)
Quarter: 2011Q3

REPORT INFORMATION
  Report Type: 
  Country: None (occurrence: None)
  Receive Date: 20110726
  Receipt Date: 20110712
  Transmission Date: 20111222
  Serious: Yes (Other)
  Sender: FDA-Public Use
  Company Number: PHHY2011KR62138

PATIENT

DRUGS (3)
  1. KEPPRA [Concomitant]
     Dosage: UNK UKN, UNK
  2. CARBAMAZEPINE [Suspect]
     Dosage: UNK UKN, UNK
  3. LAMOTRIGINE [Concomitant]
     Dosage: UNK UKN, UNK

REACTIONS (1)
  - COMPLEX PARTIAL SEIZURES [None]
